FAERS Safety Report 8143435-6 (Version None)
Quarter: 2012Q1

REPORT INFORMATION
  Report Type: 
  Country: None (occurrence: None)
  Receive Date: 20120215
  Receipt Date: 20120215
  Transmission Date: 20120608
  Serious: No
  Sender: FDA-Public Use
  Company Number: None

PATIENT
  Sex: Male

DRUGS (1)
  1. ZYTIGA [Suspect]
     Indication: PROSTATE CANCER
     Dosage: 1000 MG ONCE DAILY PO
     Route: 048
     Dates: start: 20111102, end: 20120213

REACTIONS (4)
  - MIDDLE INSOMNIA [None]
  - DIZZINESS [None]
  - SOMNOLENCE [None]
  - NOCTURIA [None]
